FAERS Safety Report 19789311 (Version 2)
Quarter: 2021Q4

REPORT INFORMATION
  Report Type: Spontaneous
  Country: PL (occurrence: PL)
  Receive Date: 20210905
  Receipt Date: 20211012
  Transmission Date: 20220303
  Serious: Yes (Other)
  Sender: FDA-Public Use
  Company Number: PL-TEVA-2021-PL-1950187

PATIENT
  Age: 73 Year
  Sex: Female

DRUGS (6)
  1. HYDROXYZINE HYDROCHLORIDE [Interacting]
     Active Substance: HYDROXYZINE HYDROCHLORIDE
     Route: 065
  2. GABAPENTIN [Interacting]
     Active Substance: GABAPENTIN
     Dosage: 66.6667 MILLIGRAM DAILY;
  3. CITALOPRAM [Concomitant]
     Active Substance: CITALOPRAM HYDROBROMIDE
  4. PREGABALIN [Concomitant]
     Active Substance: PREGABALIN
  5. DULOXETINE [Concomitant]
     Active Substance: DULOXETINE
  6. TAPENTADOL [Concomitant]
     Active Substance: TAPENTADOL

REACTIONS (4)
  - Delirium [Unknown]
  - Confusional state [Unknown]
  - Drug interaction [Unknown]
  - Drug ineffective [Unknown]
